FAERS Safety Report 6098506-5 (Version None)
Quarter: 2009Q1

REPORT INFORMATION
  Report Type: 
  Country: None (occurrence: None)
  Receive Date: 20090302
  Receipt Date: 20090219
  Transmission Date: 20090719
  Serious: Yes (Other)
  Sender: FDA-Public Use
  Company Number: CA-JNJFOC-20080804389

PATIENT
  Sex: Female
  Weight: 155 kg

DRUGS (24)
  1. REMICADE [Suspect]
     Route: 042
  2. REMICADE [Suspect]
     Route: 042
  3. REMICADE [Suspect]
     Route: 042
  4. REMICADE [Suspect]
     Route: 042
  5. REMICADE [Suspect]
     Route: 042
  6. REMICADE [Suspect]
     Route: 042
  7. REMICADE [Suspect]
     Route: 042
  8. REMICADE [Suspect]
     Route: 042
  9. REMICADE [Suspect]
     Route: 042
  10. REMICADE [Suspect]
     Route: 042
  11. REMICADE [Suspect]
     Indication: RHEUMATOID ARTHRITIS
     Route: 042
  12. ARAVA [Concomitant]
     Indication: RHEUMATOID ARTHRITIS
     Route: 048
  13. VENTOLIN HFA [Concomitant]
     Indication: ASTHMA
     Route: 055
  14. CELEXA [Concomitant]
     Indication: DEPRESSION
     Route: 048
  15. LISINOPRIL [Concomitant]
     Indication: HYPERTENSION
     Route: 048
  16. FOLIC ACID [Concomitant]
     Indication: DRUG TOXICITY
     Route: 048
  17. BENADRYL [Concomitant]
     Indication: HYPERSENSITIVITY
     Route: 048
  18. ADVAIR DISKUS 100/50 [Concomitant]
     Indication: ASTHMA
     Route: 055
  19. AMITRIPTYLINE [Concomitant]
     Indication: DEPRESSION
     Route: 048
  20. SULFASALAZINE [Concomitant]
     Indication: RHEUMATOID ARTHRITIS
     Route: 048
  21. PREDNISONE [Concomitant]
     Indication: RHEUMATOID ARTHRITIS
     Route: 048
  22. TUMS ULTRA [Concomitant]
     Indication: DYSPEPSIA
     Route: 048
  23. NEXIUM [Concomitant]
     Indication: DYSPEPSIA
     Route: 048
  24. BENADRYL [Concomitant]
     Indication: PREMEDICATION
     Route: 042

REACTIONS (5)
  - ANAEMIA [None]
  - BACK PAIN [None]
  - HEADACHE [None]
  - MYALGIA [None]
  - RASH [None]
